FAERS Safety Report 23360888 (Version 1)
Quarter: 2024Q1

REPORT INFORMATION
  Report Type: Spontaneous
  Country: US (occurrence: US)
  Receive Date: 20240103
  Receipt Date: 20240103
  Transmission Date: 20240410
  Serious: Yes (Hospitalization)
  Sender: FDA-Public Use
  Company Number: US-ORG100016242-2023000325

PATIENT
  Age: 77 Year
  Sex: Female
  Weight: 81.2 kg

DRUGS (6)
  1. ZILRETTA [Suspect]
     Active Substance: TRIAMCINOLONE ACETONIDE
     Indication: Osteoarthritis
     Dosage: LEFT KNEE,2CC 5CC
     Route: 014
     Dates: start: 20231102, end: 20231102
  2. Acid alpha lipoic [Concomitant]
     Indication: Product used for unknown indication
     Dosage: NOT PROVIDED
     Route: 065
  3. LISINOPRIL AND HYDROCHLOROTHIAZIDE [Concomitant]
     Active Substance: HYDROCHLOROTHIAZIDE\LISINOPRIL
     Indication: Product used for unknown indication
     Dosage: 1 TABLET DAILY
     Route: 048
  4. Multivitamin adult [Concomitant]
     Indication: Product used for unknown indication
     Dosage: 1 TABLET DAILY
     Route: 048
  5. OMEPRAZOLE [Concomitant]
     Active Substance: OMEPRAZOLE
     Indication: Product used for unknown indication
     Dosage: 1 CAPSULE DAILY
     Route: 048
  6. ROSUVASTATIN [Concomitant]
     Active Substance: ROSUVASTATIN
     Indication: Product used for unknown indication
     Dosage: 1 TABLET DAILY
     Route: 048

REACTIONS (5)
  - Gait inability [Recovered/Resolved]
  - Peripheral swelling [Recovering/Resolving]
  - Arthritis bacterial [Recovering/Resolving]
  - Arthralgia [Recovered/Resolved]
  - Erythema [Unknown]

NARRATIVE: CASE EVENT DATE: 20231104
